FAERS Safety Report 6215048-4 (Version None)
Quarter: 2009Q2

REPORT INFORMATION
  Report Type: 
  Country: None (occurrence: None)
  Receive Date: 20090604
  Receipt Date: 20081218
  Transmission Date: 20091009
  Serious: No
  Sender: FDA-Public Use
  Company Number: US-ASTRAZENECA-2008UW28387

PATIENT
  Age: 31 Year
  Sex: Female
  Weight: 77.1 kg

DRUGS (2)
  1. PRILOSEC [Suspect]
     Indication: GASTROOESOPHAGEAL REFLUX DISEASE
     Route: 048
     Dates: start: 20081120
  2. FLONASE [Concomitant]

REACTIONS (2)
  - DRUG INEFFECTIVE [None]
  - THROAT IRRITATION [None]
